FAERS Safety Report 4658519-4 (Version None)
Quarter: 2005Q2

REPORT INFORMATION
  Report Type: 
  Country: None (occurrence: None)
  Receive Date: 20050510
  Receipt Date: 20050510
  Transmission Date: 20051028
  Serious: Yes (Hospitalization)
  Sender: FDA-Public Use
  Company Number: None

PATIENT
  Age: 83 Year
  Sex: Male
  Weight: 90.7194 kg

DRUGS (3)
  1. FRAGMIN [Suspect]
     Indication: DEEP VEIN THROMBOSIS
     Dosage: 10,000U    DAY    SUBCUTANEO
     Route: 058
     Dates: start: 20040810, end: 20050310
  2. LUPRON [Concomitant]
  3. COZAAR [Concomitant]

REACTIONS (3)
  - DEEP VEIN THROMBOSIS [None]
  - INFARCTION [None]
  - PERIPHERAL EMBOLISM [None]
